FAERS Safety Report 18376464 (Version 1)
Quarter: 2020Q4

REPORT INFORMATION
  Report Type: Spontaneous
  Country: US (occurrence: US)
  Receive Date: 20201005
  Receipt Date: 20201005
  Transmission Date: 20210114
  Serious: No
  Sender: FDA-Public Use
  Company Number: None

PATIENT
  Sex: Female

DRUGS (4)
  1. OSELTAMIVIR [Suspect]
     Active Substance: OSELTAMIVIR
  2. ARBIDOL [Suspect]
     Active Substance: UMIFENOVIR
  3. IMIPENEM-CILASTATIN [Suspect]
     Active Substance: CILASTATIN SODIUM\IMIPENEM
  4. LOPINAVIR [Suspect]
     Active Substance: LOPINAVIR
     Indication: COVID-19
     Dates: start: 2020

REACTIONS (2)
  - Product use issue [None]
  - False positive investigation result [None]
